FAERS Safety Report 6523168-X (Version None)
Quarter: 2009Q4

REPORT INFORMATION
  Report Type: 
  Country: None (occurrence: None)
  Receive Date: 20091222
  Receipt Date: 20091211
  Transmission Date: 20100525
  Serious: Yes (Other)
  Sender: FDA-Public Use
  Company Number: IDA-00304

PATIENT
  Age: 70 Year
  Sex: Female

DRUGS (1)
  1. INDERAL [Suspect]
     Indication: HYPERTENSION
     Dosage: 20 MG DAILY ORAL FORMULATION: TABLET
     Route: 048
     Dates: start: 19990101, end: 20090101

REACTIONS (4)
  - BLOOD CHOLESTEROL INCREASED [None]
  - BREAST CANCER [None]
  - OSTEOPOROSIS [None]
  - PULMONARY RADIATION INJURY [None]
